FAERS Safety Report 9704549 (Version 1)
Quarter: 2013Q4

REPORT INFORMATION
  Report Type: Spontaneous
  Country: TH (occurrence: TH)
  Receive Date: 20131122
  Receipt Date: 20131122
  Transmission Date: 20140711
  Serious: Yes (Death)
  Sender: FDA-Public Use
  Company Number: TH-ROCHE-1305704

PATIENT
  Age: 65 Year
  Sex: Female

DRUGS (4)
  1. PEGASYS [Suspect]
     Indication: HEPATITIS C
     Route: 058
     Dates: start: 201307
  2. PEGASYS [Suspect]
     Route: 058
     Dates: start: 201309
  3. COPEGUS [Suspect]
     Indication: HEPATITIS C
     Route: 048
     Dates: start: 201307
  4. COPEGUS [Suspect]
     Dosage: 1
     Route: 048
     Dates: start: 201309

REACTIONS (1)
  - Hepatic failure [Fatal]
